FAERS Safety Report 10052514 (Version 1)
Quarter: 2014Q2

REPORT INFORMATION
  Report Type: Spontaneous
  Country: US (occurrence: US)
  Receive Date: 20140402
  Receipt Date: 20140402
  Transmission Date: 20141212
  Serious: No
  Sender: FDA-Public Use
  Company Number: US-BAYER-2014-043879

PATIENT
  Age: 39 Year
  Sex: Female

DRUGS (1)
  1. GADAVIST [Suspect]
     Dosage: 8 ML, ONCE
     Route: 042
     Dates: start: 20140321, end: 20140321

REACTIONS (3)
  - Abnormal sensation in eye [None]
  - Feeling hot [None]
  - Urticaria [None]
